FAERS Safety Report 10818560 (Version 2)
Quarter: 2018Q3

REPORT INFORMATION
  Report Type: Spontaneous
  Country: AT (occurrence: AT)
  Receive Date: 20150218
  Receipt Date: 20180928
  Transmission Date: 20181010
  Serious: Yes (Other)
  Sender: FDA-Public Use
  Company Number: PHHY2015AT019343

PATIENT
  Sex: Female

DRUGS (2)
  1. GILENYA [Suspect]
     Active Substance: FINGOLIMOD HYDROCHLORIDE
     Indication: RELAPSING-REMITTING MULTIPLE SCLEROSIS
     Route: 048
     Dates: start: 201205, end: 2014
  2. GILENYA [Suspect]
     Active Substance: FINGOLIMOD HYDROCHLORIDE
     Route: 065
     Dates: start: 20140820

REACTIONS (9)
  - Polyuria [Unknown]
  - Diabetes insipidus [Unknown]
  - Bronchitis bacterial [Unknown]
  - Optic atrophy [Unknown]
  - Hypernatraemia [Unknown]
  - Urinary tract infection [Unknown]
  - Hyponatraemia [Unknown]
  - Sinus tachycardia [Recovering/Resolving]
  - Multiple sclerosis relapse [Unknown]

NARRATIVE: CASE EVENT DATE: 20140615
